FAERS Safety Report 20759681 (Version 2)
Quarter: 2022Q2

REPORT INFORMATION
  Report Type: Spontaneous
  Country: US (occurrence: None)
  Receive Date: 20220427
  Receipt Date: 20220513
  Transmission Date: 20220721
  Serious: Yes (Other)
  Sender: FDA-Public Use
  Company Number: US-ROCHE-3079645

PATIENT
  Age: 95 Year
  Sex: Female
  Weight: 84 kg

DRUGS (2)
  1. ACTIVASE [Suspect]
     Active Substance: ALTEPLASE
     Indication: Ischaemic stroke
     Dosage: 7.7 MG IV BOLUS FOLLOWED BY 68.9MG IV PIGGY BACK OVER ONE HOUR.
     Route: 040
     Dates: start: 20220418
  2. ACTIVASE [Suspect]
     Active Substance: ALTEPLASE

REACTIONS (3)
  - Device issue [Unknown]
  - Treatment delayed [Unknown]
  - No adverse event [Unknown]

NARRATIVE: CASE EVENT DATE: 20220418
